FAERS Safety Report 5772108-X (Version None)
Quarter: 2008Q2

REPORT INFORMATION
  Report Type: 
  Country: None (occurrence: None)
  Receive Date: 20080612
  Receipt Date: 20080612
  Transmission Date: 20081010
  Serious: No
  Sender: FDA-Public Use
  Company Number: None

PATIENT
  Sex: Male

DRUGS (1)
  1. SINEQUAN [Suspect]
     Dosage: ONCE DAILY PO
     Route: 048
     Dates: start: 20080501, end: 20080506

REACTIONS (1)
  - NAUSEA [None]
